FAERS Safety Report 9196956 (Version 1)
Quarter: 2013Q1

REPORT INFORMATION
  Report Type: Spontaneous
  Country: KR (occurrence: KR)
  Receive Date: 20130328
  Receipt Date: 20130328
  Transmission Date: 20140127
  Serious: Yes (Other)
  Sender: FDA-Public Use
  Company Number: KR-MYLANLABS-2013S1006220

PATIENT
  Age: 52 Year
  Sex: Male

DRUGS (7)
  1. ASPIRIN [Suspect]
     Indication: CEREBROVASCULAR ACCIDENT
  2. CLOPIDOGREL [Suspect]
     Indication: CEREBROVASCULAR ACCIDENT
  3. MIDAZOLAM [Concomitant]
  4. PROPOFOL [Concomitant]
     Indication: INDUCTION OF ANAESTHESIA
     Dosage: 4 MICROG/ML
  5. REMIFENTANIL [Concomitant]
     Indication: INDUCTION OF ANAESTHESIA
     Dosage: 3 NG/ML
  6. SEVOFLURANE [Concomitant]
     Indication: ANAESTHESIA
     Dosage: 0.5 TO 1.0 MAC
  7. MIDAZOLAM [Concomitant]
     Indication: ANAESTHESIA

REACTIONS (3)
  - Dyspnoea [Recovered/Resolved]
  - Cyanosis [Recovered/Resolved]
  - Fear of death [Recovered/Resolved]
